FAERS Safety Report 14261503 (Version 3)
Quarter: 2018Q4

REPORT INFORMATION
  Report Type: Report from Study
  Country: NL (occurrence: NL)
  Receive Date: 20171208
  Receipt Date: 20181120
  Transmission Date: 20190204
  Serious: Yes (Hospitalization)
  Sender: FDA-Public Use
  Company Number: NL-ROCHE-2016580

PATIENT
  Age: 80 Year
  Sex: Female
  Weight: 55.7 kg

DRUGS (15)
  1. PRAVASTATIN. [Concomitant]
     Active Substance: PRAVASTATIN
     Route: 065
     Dates: start: 20171023, end: 20171024
  2. RITUXIMAB. [Suspect]
     Active Substance: RITUXIMAB
     Indication: MANTLE CELL LYMPHOMA
     Dosage: ADMINISTERED IN 3 WEEK CYCLES FOR 3 CYCLES: AS PER PROTOCOL
     Route: 042
     Dates: start: 20170710
  3. MACROGOL [Concomitant]
     Active Substance: POLYETHYLENE GLYCOLS
     Route: 065
     Dates: start: 20171023, end: 20171024
  4. VINCRISTINE [Suspect]
     Active Substance: VINCRISTINE
     Indication: MANTLE CELL LYMPHOMA
     Dosage: ADMINISTERED IN 3 WEEK CYCLES FOR 3 CYCLES: AS PER PROTOCOL
     Route: 065
     Dates: start: 20170710
  5. OMEPRAZOLE. [Concomitant]
     Active Substance: OMEPRAZOLE
     Route: 065
     Dates: start: 20171023, end: 20171024
  6. NADROPARINE [Concomitant]
     Active Substance: NADROPARIN
     Route: 065
     Dates: start: 20181023, end: 20181024
  7. DOXORUBICIN [Suspect]
     Active Substance: DOXORUBICIN
     Indication: MANTLE CELL LYMPHOMA
     Dosage: ADMINISTERED IN 3 WEEK CYCLES FOR 3 CYCLES: AS PER PROTOCOL
     Route: 065
     Dates: start: 20170710
  8. COLECALCIFEROL [Concomitant]
     Active Substance: CHOLECALCIFEROL
     Route: 065
     Dates: start: 20171023, end: 20171024
  9. CYCLOPHOSPHAMIDE. [Suspect]
     Active Substance: CYCLOPHOSPHAMIDE
     Indication: MANTLE CELL LYMPHOMA
     Dosage: ADMINISTERED IN 3 WEEK CYCLES FOR 3 CYCLES: AS PER PROTOCOL
     Route: 065
     Dates: start: 20170710
  10. PREDNISONE. [Suspect]
     Active Substance: PREDNISONE
     Indication: MANTLE CELL LYMPHOMA
     Dosage: ADMINISTERED IN 3 WEEK CYCLES FOR 3 CYCLES: AS PER PROTOCOL
     Route: 065
     Dates: start: 20170710
  11. PARACETAMOL [Concomitant]
     Active Substance: ACETAMINOPHEN
     Route: 065
     Dates: start: 20181023, end: 20181024
  12. HYDROCHLOROTHIAZIDE. [Concomitant]
     Active Substance: HYDROCHLOROTHIAZIDE
     Route: 065
     Dates: start: 20171023, end: 20171024
  13. COTRIMOXAZOLE [Concomitant]
     Active Substance: SULFAMETHOXAZOLE\TRIMETHOPRIM
     Route: 065
     Dates: start: 20171024, end: 20180320
  14. PARACETAMOL [Concomitant]
     Active Substance: ACETAMINOPHEN
     Route: 065
     Dates: start: 20171024, end: 20180320
  15. COTRIMOXAZOLE [Concomitant]
     Active Substance: SULFAMETHOXAZOLE\TRIMETHOPRIM
     Route: 065
     Dates: start: 20171023, end: 20171024

REACTIONS (1)
  - Syncope [Recovered/Resolved]

NARRATIVE: CASE EVENT DATE: 20171023
